FAERS Safety Report 23080819 (Version 2)
Quarter: 2023Q4

REPORT INFORMATION
  Report Type: Spontaneous
  Country: US (occurrence: US)
  Receive Date: 20231018
  Receipt Date: 20231114
  Transmission Date: 20240110
  Serious: No
  Sender: FDA-Public Use
  Company Number: US-Ipsen Biopharmaceuticals, Inc.-2023-23873

PATIENT
  Age: 67 Year
  Sex: Female
  Weight: 55.33 kg

DRUGS (22)
  1. TAZVERIK [Suspect]
     Active Substance: TAZEMETOSTAT HYDROBROMIDE
     Indication: Non-Hodgkin^s lymphoma
     Dosage: 800 MG, 4 TABLETS TWICE A DAY
     Route: 048
  2. ALBUTEROL [Concomitant]
     Active Substance: ALBUTEROL
  3. ANORO ELLIPTA [Concomitant]
     Active Substance: UMECLIDINIUM BROMIDE\VILANTEROL TRIFENATATE
  4. ASCORBIC ACID [Concomitant]
     Active Substance: ASCORBIC ACID
  5. ATORVASTATIN [Concomitant]
     Active Substance: ATORVASTATIN
  6. BENZONATATE [Concomitant]
     Active Substance: BENZONATATE
  7. CHLORTHALIDONE [Concomitant]
     Active Substance: CHLORTHALIDONE
  8. MAGNESIUM [Concomitant]
     Active Substance: MAGNESIUM
  9. VITAMIN E [Concomitant]
     Active Substance: .ALPHA.-TOCOPHEROL
  10. FERROUS SULFATE [Concomitant]
     Active Substance: FERROUS SULFATE
  11. FOSAMAX [Concomitant]
     Active Substance: ALENDRONATE SODIUM
  12. GOODSENSE ASPRIN [Concomitant]
  13. VITAMIN D3 [Concomitant]
     Active Substance: CHOLECALCIFEROL
  14. ACETAMINOPHEN\HYDROCODONE [Concomitant]
     Active Substance: ACETAMINOPHEN\HYDROCODONE
  15. LYSINE [Concomitant]
     Active Substance: LYSINE
  16. LOSARTAN [Concomitant]
     Active Substance: LOSARTAN
  17. METOPROLOL TARTRATE [Concomitant]
     Active Substance: METOPROLOL TARTRATE
  18. NITROGLYCERIN [Concomitant]
     Active Substance: NITROGLYCERIN
  19. ONDANSETRON HYDROCHLORIDE [Concomitant]
     Active Substance: ONDANSETRON HYDROCHLORIDE
  20. PANTOPRAZOLE [Concomitant]
     Active Substance: PANTOPRAZOLE
  21. ROFLUMILAST [Concomitant]
     Active Substance: ROFLUMILAST
  22. CYANOCOBALAMIN [Concomitant]
     Active Substance: CYANOCOBALAMIN

REACTIONS (7)
  - Fatigue [Not Recovered/Not Resolved]
  - Muscle spasms [Not Recovered/Not Resolved]
  - Feeling of body temperature change [Not Recovered/Not Resolved]
  - Nausea [Not Recovered/Not Resolved]
  - Headache [Not Recovered/Not Resolved]
  - Rash [Not Recovered/Not Resolved]
  - Product dose omission issue [Unknown]
